FAERS Safety Report 17783629 (Version 1)
Quarter: 2020Q2

REPORT INFORMATION
  Report Type: Report from Study
  Country: CO (occurrence: CO)
  Receive Date: 20200513
  Receipt Date: 20200513
  Transmission Date: 20200714
  Serious: Yes (Death, Hospitalization)
  Sender: FDA-Public Use
  Company Number: NVSC2019CO091023

PATIENT
  Sex: Female

DRUGS (1)
  1. ENTRESTO [Suspect]
     Active Substance: SACUBITRIL\VALSARTAN
     Indication: PRODUCT USED FOR UNKNOWN INDICATION
     Dosage: 50 MG, UNKNOWN
     Route: 065

REACTIONS (9)
  - Renal disorder [Unknown]
  - Death [Fatal]
  - Sphincter of Oddi dysfunction [Unknown]
  - Biliary cancer metastatic [Unknown]
  - Metastases to bone [Unknown]
  - Haematoma [Unknown]
  - Feeling hot [Unknown]
  - Hypoaesthesia [Unknown]
  - Metastasis [Unknown]

NARRATIVE: CASE EVENT DATE: 20191004
